FAERS Safety Report 11302272 (Version 2)
Quarter: 2015Q3

REPORT INFORMATION
  Report Type: Spontaneous
  Country: US (occurrence: US)
  Receive Date: 20150722
  Receipt Date: 20150916
  Transmission Date: 20151125
  Serious: No
  Sender: FDA-Public Use
  Company Number: US-ELI_LILLY_AND_COMPANY-US200602000795

PATIENT
  Age: 74 Year
  Sex: Female

DRUGS (4)
  1. EVISTA [Suspect]
     Active Substance: RALOXIFENE HYDROCHLORIDE
     Indication: BONE DISORDER
     Dosage: UNK, UNK
     Dates: start: 2001
  2. CALCIUM [Concomitant]
     Active Substance: CALCIUM
  3. VITAMINS [Concomitant]
     Active Substance: VITAMINS
  4. FORTEO [Suspect]
     Active Substance: TERIPARATIDE
     Indication: OSTEOPOROSIS
     Dosage: UNK, UNK
     Dates: start: 20060130

REACTIONS (7)
  - Vision blurred [Recovered/Resolved]
  - Tinnitus [Not Recovered/Not Resolved]
  - Insomnia [Not Recovered/Not Resolved]
  - Palpitations [Recovered/Resolved]
  - Palpitations [Not Recovered/Not Resolved]
  - Headache [Recovered/Resolved]
  - Drug ineffective [Unknown]

NARRATIVE: CASE EVENT DATE: 20060130
